FAERS Safety Report 7358161-0 (Version None)
Quarter: 2011Q1

REPORT INFORMATION
  Report Type: 
  Country: None (occurrence: None)
  Receive Date: 20110314
  Receipt Date: 20110314
  Transmission Date: 20110831
  Serious: Yes (Other)
  Sender: FDA-Public Use
  Company Number: None

PATIENT
  Age: 60 Year
  Sex: Female
  Weight: 73.0291 kg

DRUGS (3)
  1. OXYCONTIN [Suspect]
     Indication: ARTHRITIS
     Dosage: 20 MG QAM (1) BID (1)Q HS(1) ORAL
     Route: 048
     Dates: start: 20101101, end: 20101201
  2. OXYCONTIN [Suspect]
     Indication: CONNECTIVE TISSUE DISORDER
     Dosage: 20 MG QAM (1) BID (1)Q HS(1) ORAL
     Route: 048
     Dates: start: 20101101, end: 20101201
  3. OXYCONTIN [Suspect]
     Indication: PAIN
     Dosage: 20 MG QAM (1) BID (1)Q HS(1) ORAL
     Route: 048
     Dates: start: 20101101, end: 20101201

REACTIONS (9)
  - ANXIETY [None]
  - DRUG INEFFECTIVE [None]
  - PAIN [None]
  - MOOD SWINGS [None]
  - SUICIDAL IDEATION [None]
  - UNEVALUABLE EVENT [None]
  - DEPRESSION [None]
  - SOCIAL AVOIDANT BEHAVIOUR [None]
  - PRODUCT FORMULATION ISSUE [None]
